FAERS Safety Report 4921662-6 (Version None)
Quarter: 2006Q1

REPORT INFORMATION
  Report Type: 
  Country: None (occurrence: None)
  Receive Date: 20060223
  Receipt Date: 20060223
  Transmission Date: 20060701
  Serious: Yes (Other)
  Sender: FDA-Public Use
  Company Number: None

PATIENT
  Age: 21 Year
  Sex: Male
  Weight: 81.6475 kg

DRUGS (1)
  1. SEROQUEL [Suspect]
     Dosage: 300 MG  QAM  BUCCAL
     Route: 002
     Dates: start: 20060111, end: 20060112

REACTIONS (1)
  - LEUKOPENIA [None]
